FAERS Safety Report 6423982-5 (Version None)
Quarter: 2009Q4

REPORT INFORMATION
  Report Type: 
  Country: None (occurrence: None)
  Receive Date: 20091102
  Receipt Date: 20091028
  Transmission Date: 20100525
  Serious: Yes (Death, Other)
  Sender: FDA-Public Use
  Company Number: PHHY2009HK46879

PATIENT
  Age: 8 Year
  Sex: Female

DRUGS (5)
  1. CYCLOSPORINE [Suspect]
     Indication: CORD BLOOD TRANSPLANT THERAPY
  2. CYCLOSPORINE [Suspect]
     Indication: GRAFT VERSUS HOST DISEASE
  3. METHYLPREDNISOLONE 4MG TAB [Suspect]
     Indication: GRAFT VERSUS HOST DISEASE
  4. CYCLOPHOSPHAMIDE [Concomitant]
     Dosage: 60 MG/KG FOR 2 DAYS
  5. IRRADIATION [Concomitant]
     Dosage: 1440 CGY

REACTIONS (12)
  - ABNORMAL BEHAVIOUR [None]
  - BONE MARROW FAILURE [None]
  - CONVULSION [None]
  - ENCEPHALITIS HERPES [None]
  - GRAFT VERSUS HOST DISEASE [None]
  - HAEMORRHAGE INTRACRANIAL [None]
  - HEADACHE [None]
  - HUMAN HERPESVIRUS 6 INFECTION [None]
  - HYPERTENSION [None]
  - HYPONATRAEMIA [None]
  - LYMPHOPENIA [None]
  - PYREXIA [None]
